FAERS Safety Report 13194605 (Version 1)
Quarter: 2017Q1

REPORT INFORMATION
  Report Type: Spontaneous
  Country: US (occurrence: US)
  Receive Date: 20170207
  Receipt Date: 20170207
  Transmission Date: 20170428
  Serious: No
  Sender: FDA-Public Use
  Company Number: US-JAZZ-2016-US-011302

PATIENT
  Sex: Male

DRUGS (15)
  1. COENZYME Q10 [Concomitant]
     Active Substance: UBIDECARENONE
  2. CLONAZEPAM. [Concomitant]
     Active Substance: CLONAZEPAM
  3. PRIALT [Suspect]
     Active Substance: ZICONOTIDE ACETATE
     Indication: PAIN
     Dosage: 0.5 ?G, QH
     Route: 037
     Dates: start: 20130723, end: 20130917
  4. CLONIDINE. [Concomitant]
     Active Substance: CLONIDINE
     Dosage: UNK
  5. VITAMIN B2 [Concomitant]
     Active Substance: RIBOFLAVIN
  6. MS CONTIN [Concomitant]
     Active Substance: MORPHINE SULFATE
     Dosage: 30 MG, Q12H
     Route: 037
  7. LEVOCARNITINE. [Concomitant]
     Active Substance: LEVOCARNITINE
  8. HYDROCODONE BITARTRATE AND ACETAMINOPHEN [Concomitant]
     Active Substance: ACETAMINOPHEN\HYDROCODONE BITARTRATE
  9. MIRTAZAPINE. [Concomitant]
     Active Substance: MIRTAZAPINE
  10. PRIALT [Suspect]
     Active Substance: ZICONOTIDE ACETATE
     Dosage: 0.046 ?G, QH
     Route: 037
     Dates: start: 20131008, end: 20131017
  11. DILAUDID [Suspect]
     Active Substance: HYDROMORPHONE HYDROCHLORIDE
  12. NAMENDA [Concomitant]
     Active Substance: MEMANTINE HYDROCHLORIDE
  13. PRIALT [Suspect]
     Active Substance: ZICONOTIDE ACETATE
     Indication: SPINAL PAIN
     Dosage: 0.01 ?G, QH
     Route: 037
     Dates: start: 20130924, end: 20131008
  14. VITAMIN D [Concomitant]
     Active Substance: CHOLECALCIFEROL
  15. PRIALT [Suspect]
     Active Substance: ZICONOTIDE ACETATE
     Indication: NEUROPATHY PERIPHERAL
     Dosage: 0.006 ?G, QH
     Route: 037
     Dates: start: 20130917, end: 20130924

REACTIONS (1)
  - Drug ineffective [Unknown]
